FAERS Safety Report 14100690 (Version 2)
Quarter: 2017Q4

REPORT INFORMATION
  Report Type: Report from Study
  Country: None (occurrence: DE)
  Receive Date: 20171018
  Receipt Date: 20171116
  Transmission Date: 20180321
  Serious: Yes (Death, Other)
  Sender: FDA-Public Use
  Company Number: DE-ABBVIE-17K-062-2133536-00

PATIENT
  Age: 54 Year
  Sex: Male
  Weight: 48.5 kg

DRUGS (8)
  1. DUODOPA [Suspect]
     Active Substance: CARBIDOPA\LEVODOPA
     Indication: PARKINSON^S DISEASE
     Dosage: MD: 0 ML,  CRD: 1.9ML/H, CRD2: 2.1ML/H, CRN: 1.4 ML/H, ED: 1.5ML?1.9-0-0 NOCTE
     Route: 050
     Dates: start: 20130529
  2. SODIUM CHLORIDE. [Concomitant]
     Active Substance: SODIUM CHLORIDE
     Indication: PRODUCT USED FOR UNKNOWN INDICATION
     Dosage: 1000 MG
  3. IBUPROFEN (NSAID) PAIN RELIEVER/FEVER REDUCER [Concomitant]
     Active Substance: IBUPROFEN
     Indication: PAIN
     Dosage: FREQUENCY TEXT: AS NEEDED, MAXIMUM 4 TABLETS
  4. VIGANTOLETTEN [Concomitant]
     Active Substance: CHOLECALCIFEROL
     Indication: VITAMIN D DEFICIENCY
  5. B12 ANKERMANN [Concomitant]
     Indication: VITAMIN B12 DEFICIENCY
  6. RANITIC [Concomitant]
     Active Substance: RANITIDINE HYDROCHLORIDE
     Indication: GASTROOESOPHAGEAL REFLUX DISEASE
  7. QUETIAPIN ABZ [Concomitant]
     Indication: PRODUCT USED FOR UNKNOWN INDICATION
  8. EXELON [Concomitant]
     Active Substance: RIVASTIGMINE TARTRATE
     Indication: PRODUCT USED FOR UNKNOWN INDICATION
     Dosage: 4.6 MG/24 HOURS

REACTIONS (6)
  - Pain [Unknown]
  - Gastrooesophageal reflux disease [Unknown]
  - Vitamin D deficiency [Unknown]
  - General physical health deterioration [Fatal]
  - Vitamin B12 deficiency [Unknown]
  - Parkinson^s disease [Unknown]

NARRATIVE: CASE EVENT DATE: 201701
